FAERS Safety Report 18510728 (Version 1)
Quarter: 2020Q4

REPORT INFORMATION
  Report Type: Spontaneous
  Country: US (occurrence: US)
  Receive Date: 20201116
  Receipt Date: 20201116
  Transmission Date: 20210114
  Serious: No
  Sender: FDA-Public Use
  Company Number: None

PATIENT
  Age: 37 Year
  Sex: Female
  Weight: 99 kg

DRUGS (5)
  1. EMGALITY [Suspect]
     Active Substance: GALCANEZUMAB-GNLM
     Indication: MIGRAINE
     Dosage: ?          QUANTITY:2 INJECTION(S);?
     Route: 058
     Dates: start: 20201101, end: 20201101
  2. CELEXA [Concomitant]
     Active Substance: CITALOPRAM HYDROBROMIDE
  3. PHENTERMINE. [Concomitant]
     Active Substance: PHENTERMINE
  4. METFORMIN [Concomitant]
     Active Substance: METFORMIN HYDROCHLORIDE
  5. IMITREX [Concomitant]
     Active Substance: SUMATRIPTAN SUCCINATE

REACTIONS (7)
  - Tongue blistering [None]
  - Peripheral swelling [None]
  - Oral mucosal blistering [None]
  - Oropharyngeal blistering [None]
  - Rash [None]
  - Swelling face [None]
  - Swelling of eyelid [None]

NARRATIVE: CASE EVENT DATE: 20201104
